FAERS Safety Report 23457567 (Version 1)
Quarter: 2024Q1

REPORT INFORMATION
  Report Type: Spontaneous
  Country: US (occurrence: US)
  Receive Date: 20240130
  Receipt Date: 20240130
  Transmission Date: 20240410
  Serious: No
  Sender: FDA-Public Use
  Company Number: US-AMERICAN REGENT INC-2023000886

PATIENT

DRUGS (1)
  1. ESTRADIOL VALERATE [Suspect]
     Active Substance: ESTRADIOL VALERATE
     Indication: Product used for unknown indication
     Dosage: UNK, SINGLE
     Dates: start: 20230407, end: 20230407

REACTIONS (7)
  - Injection site mass [Recovered/Resolved]
  - Injection site pain [Recovering/Resolving]
  - Injection site haematoma [Recovered/Resolved]
  - Hypersensitivity [Unknown]
  - Product colour issue [Unknown]
  - Product administration error [Unknown]
  - Product quality issue [Unknown]

NARRATIVE: CASE EVENT DATE: 20230407
